FAERS Safety Report 5865341 (Version 3)
Quarter: 2014Q2

REPORT INFORMATION
  Report Type: Spontaneous
  Country: US (occurrence: US)
  Receive Date: 20050823
  Receipt Date: 20140530
  Transmission Date: 20141212
  Serious: Yes (Death, Hospitalization)
  Sender: FDA-Public Use
  Company Number: US-GLAXOSMITHKLINE-A0570462A

PATIENT
  Age: 83 Year
  Sex: Female

DRUGS (3)
  1. WELLBUTRIN [Suspect]
     Indication: DEPRESSION
     Dosage: 100MG PER DAY
     Route: 048
     Dates: start: 200207, end: 20030214
  2. HEART MEDICATION [Concomitant]
  3. UNSPECIFIED ANTI-DIABETIC [Concomitant]

REACTIONS (6)
  - Death [Fatal]
  - Convulsion [Not Recovered/Not Resolved]
  - Petit mal epilepsy [Unknown]
  - Generalised tonic-clonic seizure [Unknown]
  - Brain injury [Unknown]
  - Gait disturbance [Unknown]
